FAERS Safety Report 4695165-0 (Version None)
Quarter: 2005Q2

REPORT INFORMATION
  Report Type: 
  Country: None (occurrence: None)
  Receive Date: 20050617
  Receipt Date: 20050601
  Transmission Date: 20051028
  Serious: Yes (Other)
  Sender: FDA-Public Use
  Company Number: US138469

PATIENT

DRUGS (1)
  1. ENBREL [Suspect]
     Indication: JUVENILE ARTHRITIS

REACTIONS (4)
  - CARDIOMYOPATHY [None]
  - CONDITION AGGRAVATED [None]
  - PERICARDITIS [None]
  - RHEUMATOID ARTHRITIS [None]
